FAERS Safety Report 8532497-X (Version None)
Quarter: 2012Q3

REPORT INFORMATION
  Report Type: 
  Country: None (occurrence: None)
  Receive Date: 20120716
  Receipt Date: 20120716
  Transmission Date: 20120928
  Serious: Yes (Other)
  Sender: FDA-Public Use
  Company Number: None

PATIENT
  Sex: Female
  Weight: 53.978 kg

DRUGS (1)
  1. AUGMENTIN '875' [Suspect]
     Indication: SINUSITIS
     Dosage: 875-125 12 HOURS PO
     Route: 048
     Dates: start: 20120711, end: 20120714

REACTIONS (3)
  - URTICARIA [None]
  - EYE SWELLING [None]
  - EYELID OEDEMA [None]
